FAERS Safety Report 16413074 (Version 1)
Quarter: 2019Q2

REPORT INFORMATION
  Report Type: Spontaneous
  Country: CN (occurrence: CN)
  Receive Date: 20190611
  Receipt Date: 20190611
  Transmission Date: 20190711
  Serious: Yes (Other)
  Sender: FDA-Public Use
  Company Number: CN-ROCHE-2320033

PATIENT
  Age: 57 Year
  Sex: Male

DRUGS (13)
  1. XELODA [Suspect]
     Active Substance: CAPECITABINE
     Route: 065
     Dates: start: 20141208
  2. CALCIUM FOLINATE [Concomitant]
     Active Substance: LEUCOVORIN CALCIUM
     Indication: HEPATIC CANCER
  3. XELODA [Suspect]
     Active Substance: CAPECITABINE
     Indication: HEPATIC CANCER
     Route: 065
     Dates: start: 20140805
  4. XELODA [Suspect]
     Active Substance: CAPECITABINE
     Route: 065
     Dates: start: 20160922
  5. OXALIPLATIN. [Concomitant]
     Active Substance: OXALIPLATIN
     Indication: METASTASES TO LIVER
     Route: 065
     Dates: start: 20140805
  6. CALCIUM FOLINATE [Concomitant]
     Active Substance: LEUCOVORIN CALCIUM
     Indication: METASTASES TO LUNG
     Route: 065
     Dates: start: 20180130
  7. IRINOTECAN [Concomitant]
     Active Substance: IRINOTECAN
     Route: 065
     Dates: start: 20180130
  8. CALCIUM FOLINATE [Concomitant]
     Active Substance: LEUCOVORIN CALCIUM
     Indication: HEPATIC CANCER
     Route: 065
     Dates: start: 20170620
  9. FLUOROURACIL. [Concomitant]
     Active Substance: FLUOROURACIL
     Indication: HEPATIC CANCER
     Route: 065
     Dates: start: 20180130
  10. BEVACIZUMAB. [Suspect]
     Active Substance: BEVACIZUMAB
     Indication: HEPATIC CANCER
     Route: 065
     Dates: start: 20180130
  11. OXALIPLATIN. [Concomitant]
     Active Substance: OXALIPLATIN
     Indication: METASTASES TO LIVER
     Route: 065
     Dates: start: 20160922
  12. FLUOROURACIL. [Concomitant]
     Active Substance: FLUOROURACIL
     Indication: METASTASES TO LIVER
     Route: 065
     Dates: start: 20170620
  13. IRINOTECAN [Concomitant]
     Active Substance: IRINOTECAN
     Indication: HEPATIC CANCER
     Route: 065
     Dates: start: 20170620

REACTIONS (7)
  - Therapeutic product effect decreased [Unknown]
  - Device related infection [Not Recovered/Not Resolved]
  - Intestinal obstruction [Unknown]
  - Cholelithiasis [Unknown]
  - Ill-defined disorder [Unknown]
  - Intestinal obstruction [Recovering/Resolving]
  - Cholecystitis chronic [Unknown]
